FAERS Safety Report 7077525-6 (Version None)
Quarter: 2010Q4

REPORT INFORMATION
  Report Type: 
  Country: None (occurrence: None)
  Receive Date: 20101101
  Receipt Date: 20101025
  Transmission Date: 20110411
  Serious: Yes (Death, Hospitalization)
  Sender: FDA-Public Use
  Company Number: JP-BRISTOL-MYERS SQUIBB COMPANY-15071707

PATIENT
  Age: 45 Year
  Sex: Female
  Weight: 63 kg

DRUGS (14)
  1. TAXOL [Suspect]
     Indication: BREAST CANCER
     Dosage: 09 TO 31 MAR09- 65MG/M2.ON 24MAR10 DAY8 OF CYC32 AND 31MAR10,DAY15 OF CYC32 WAS NOT DOSED.
     Route: 041
     Dates: start: 20071018, end: 20090309
  2. AVASTIN [Suspect]
     Indication: BREAST CANCER
     Dosage: NOT RECEIVED THERAPY ON 17MAR10, DAY 1 OF CYCLE 32,
     Route: 041
     Dates: start: 20071018, end: 20100331
  3. DECADRON [Concomitant]
     Indication: PREMEDICATION
     Dosage: INJ
     Route: 042
     Dates: start: 20071018, end: 20100331
  4. RESTAMIN [Concomitant]
     Indication: PREMEDICATION
     Route: 048
     Dates: start: 20071018, end: 20100331
  5. ZANTAC [Concomitant]
     Indication: PREMEDICATION
     Dosage: INJ
     Route: 042
     Dates: start: 20071018, end: 20100331
  6. GOSHAJINKIGAN [Concomitant]
     Dosage: GRAN
     Route: 048
     Dates: start: 20090221
  7. CYANOCOBALAMIN [Concomitant]
     Route: 048
     Dates: start: 20090319
  8. GLAKAY [Concomitant]
     Indication: OSTEOPOROSIS
     Dosage: CAPS
     Route: 048
     Dates: start: 20091010
  9. ACTONEL [Concomitant]
     Indication: OSTEOPOROSIS
     Route: 048
     Dates: start: 20091011
  10. ELCITONIN [Concomitant]
     Indication: OSTEOPOROSIS
     Dosage: 1DF-20 UNITS,INJ
     Route: 030
     Dates: start: 20100116
  11. LENDORMIN [Concomitant]
     Indication: INSOMNIA
     Dosage: TABS
     Route: 048
     Dates: start: 20100106
  12. MUCOSTA [Concomitant]
     Indication: GASTRITIS PROPHYLAXIS
     Dosage: TAB
     Route: 048
     Dates: start: 20100303
  13. MYSLEE [Concomitant]
     Indication: INSOMNIA
     Dosage: TABS
     Route: 048
     Dates: start: 20100303
  14. LOXONIN [Concomitant]
     Indication: BACK PAIN
     Route: 048
     Dates: start: 20090930

REACTIONS (2)
  - CARDIAC FAILURE CONGESTIVE [None]
  - MYOCARDIAL INFARCTION [None]
